FAERS Safety Report 14733651 (Version 3)
Quarter: 2019Q3

REPORT INFORMATION
  Report Type: Spontaneous
  Country: US (occurrence: US)
  Receive Date: 20180409
  Receipt Date: 20190702
  Transmission Date: 20191004
  Serious: Yes (Other)
  Sender: FDA-Public Use
  Company Number: US-ASTRAZENECA-2018SE41968

PATIENT
  Age: 29803 Day
  Sex: Female
  Weight: 64.9 kg

DRUGS (48)
  1. DEXILANT [Suspect]
     Active Substance: DEXLANSOPRAZOLE
     Indication: GASTROOESOPHAGEAL REFLUX DISEASE
     Route: 065
     Dates: start: 200711
  2. ALLOPURINOL. [Concomitant]
     Active Substance: ALLOPURINOL
     Indication: GOUT
     Dates: start: 201708
  3. AZITHROMYCIN ANHYDROUS. [Concomitant]
     Active Substance: AZITHROMYCIN ANHYDROUS
     Dates: start: 201412, end: 201512
  4. LEVAQUIN [Concomitant]
     Active Substance: LEVOFLOXACIN
     Dates: start: 200812
  5. LEVOFLOXACIN. [Concomitant]
     Active Substance: LEVOFLOXACIN
     Dates: start: 201508
  6. VIMOVO [Concomitant]
     Active Substance: ESOMEPRAZOLE MAGNESIUM\NAPROXEN
     Indication: ANALGESIC THERAPY
     Dates: start: 2011
  7. FLUTICASONE. [Concomitant]
     Active Substance: FLUTICASONE
  8. ASPIRIN. [Concomitant]
     Active Substance: ASPIRIN
  9. TRAMADOL. [Concomitant]
     Active Substance: TRAMADOL
     Indication: ANALGESIC THERAPY
     Dates: start: 201711
  10. NEXIUM [Suspect]
     Active Substance: ESOMEPRAZOLE MAGNESIUM
     Indication: GASTROOESOPHAGEAL REFLUX DISEASE
     Dosage: GENERIC ESOME PRAZOLE
     Route: 048
     Dates: start: 201705, end: 201709
  11. LISINOPRIL -HCTZ [Concomitant]
     Indication: HYPERTENSION
     Dates: start: 200911, end: 201112
  12. ALPHAGAN P [Concomitant]
     Active Substance: BRIMONIDINE TARTRATE
  13. FLUTICASONE. [Concomitant]
     Active Substance: FLUTICASONE
  14. DEXILANT [Suspect]
     Active Substance: DEXLANSOPRAZOLE
     Indication: GASTROOESOPHAGEAL REFLUX DISEASE
     Route: 065
     Dates: start: 2017, end: 2017
  15. HYDROCHLOROTHIAZIDE. [Concomitant]
     Active Substance: HYDROCHLOROTHIAZIDE
     Indication: HYPERTENSION
     Dates: start: 201609, end: 201701
  16. VIGAMO EYE DROPS [Concomitant]
     Indication: ANALGESIC THERAPY
     Dates: start: 201705
  17. ATORVASTATIN [Concomitant]
     Active Substance: ATORVASTATIN
  18. NEXIUM [Suspect]
     Active Substance: ESOMEPRAZOLE MAGNESIUM
     Indication: GASTROOESOPHAGEAL REFLUX DISEASE
     Route: 048
     Dates: start: 2007, end: 2017
  19. TRAMADOL. [Concomitant]
     Active Substance: TRAMADOL
     Indication: ANALGESIC THERAPY
     Dates: start: 200906, end: 200911
  20. CEPHALEXIN. [Concomitant]
     Active Substance: CEPHALEXIN
     Indication: COUGH
     Dates: start: 2015
  21. HYDROCODONE [Concomitant]
     Active Substance: HYDROCODONE
     Indication: ANALGESIC THERAPY
     Dates: start: 2010
  22. MECLIZINE [Concomitant]
     Active Substance: MECLIZINE HYDROCHLORIDE
     Indication: ANTIALLERGIC THERAPY
     Dates: start: 2010
  23. ATORVASTATIN [Concomitant]
     Active Substance: ATORVASTATIN
  24. METOPROLOL TARTRATE. [Concomitant]
     Active Substance: METOPROLOL TARTRATE
  25. FERROUS SULFATE. [Concomitant]
     Active Substance: FERROUS SULFATE
  26. ENALAPRIL MALEATE. [Concomitant]
     Active Substance: ENALAPRIL MALEATE
     Indication: HYPERTENSION
     Dates: start: 201709, end: 201712
  27. INDOMETHACIN. [Concomitant]
     Active Substance: INDOMETHACIN
     Indication: ANALGESIC THERAPY
     Dates: start: 201402
  28. MELOXICAM. [Concomitant]
     Active Substance: MELOXICAM
     Indication: ARTHRITIS
     Dates: start: 201411, end: 201501
  29. NAPROXEN. [Concomitant]
     Active Substance: NAPROXEN
     Indication: ANALGESIC THERAPY
     Dates: start: 200711, end: 2018
  30. COLCRYS [Concomitant]
     Active Substance: COLCHICINE
     Indication: GOUT
     Dates: start: 2013
  31. METOCLOPRAMIDE. [Concomitant]
     Active Substance: METOCLOPRAMIDE
     Indication: ANALGESIC THERAPY
     Dates: start: 2010
  32. VALACYCLOVIR HCL [Concomitant]
     Active Substance: VALACYCLOVIR HYDROCHLORIDE
     Indication: ANALGESIC THERAPY
     Dates: start: 2015
  33. TRAVATAZAN [Concomitant]
  34. METOCLOPRAMIDE. [Concomitant]
     Active Substance: METOCLOPRAMIDE
  35. ACYCLOVIR. [Concomitant]
     Active Substance: ACYCLOVIR
     Dates: start: 201508
  36. COMBIGAN [Concomitant]
     Active Substance: BRIMONIDINE TARTRATE\TIMOLOL MALEATE
  37. TRICOR [Concomitant]
     Active Substance: FENOFIBRATE
  38. AMLODIPINE [Concomitant]
     Active Substance: AMLODIPINE BESYLATE
  39. AMLODIPINE [Concomitant]
     Active Substance: AMLODIPINE BESYLATE
  40. AMOXICILLIN. [Concomitant]
     Active Substance: AMOXICILLIN
     Dates: start: 201403, end: 201411
  41. CIPROFLOXACIN. [Concomitant]
     Active Substance: CIPROFLOXACIN
     Dates: start: 201007
  42. VOLTAREN [Concomitant]
     Active Substance: DICLOFENAC SODIUM
     Indication: ANALGESIC THERAPY
     Dates: start: 201707
  43. BENZONATATE. [Concomitant]
     Active Substance: BENZONATATE
     Indication: COUGH
     Dates: start: 2014
  44. LUMIGAN [Concomitant]
     Active Substance: BIMATOPROST
     Indication: GLAUCOMA
     Dates: start: 2007
  45. METRONIDAZOLE. [Concomitant]
     Active Substance: METRONIDAZOLE
     Indication: ANALGESIC THERAPY
     Dates: start: 2013
  46. PREDNISONE. [Concomitant]
     Active Substance: PREDNISONE
     Indication: ANALGESIC THERAPY
     Dates: start: 2015
  47. GEMFIBROZIL. [Concomitant]
     Active Substance: GEMFIBROZIL
  48. ALENDRONATE [Concomitant]
     Active Substance: ALENDRONATE SODIUM

REACTIONS (5)
  - Acute kidney injury [Unknown]
  - Tubulointerstitial nephritis [Unknown]
  - Renal failure [Unknown]
  - Chronic kidney disease [Not Recovered/Not Resolved]
  - Nephrogenic anaemia [Unknown]

NARRATIVE: CASE EVENT DATE: 20110703
